FAERS Safety Report 8347921-5 (Version None)
Quarter: 2012Q2

REPORT INFORMATION
  Report Type: 
  Country: None (occurrence: None)
  Receive Date: 20120509
  Receipt Date: 20120424
  Transmission Date: 20120825
  Serious: Yes (Hospitalization, Other)
  Sender: FDA-Public Use
  Company Number: TW-WATSON-2012-07338

PATIENT
  Age: 40 Year
  Sex: Male

DRUGS (2)
  1. ZOTEPINE [Suspect]
     Indication: SCHIZOPHRENIA
     Dosage: 350 MG, DAILY
     Route: 065
  2. VALPROATE SODIUM [Suspect]
     Indication: IRRITABILITY
     Dosage: 1000 MG, DAILY
     Route: 065

REACTIONS (4)
  - DECREASED VENTRICULAR PRELOAD [None]
  - TACHYCARDIA [None]
  - DELIRIUM [None]
  - DRUG INTERACTION [None]
